FAERS Safety Report 21522200 (Version 1)
Quarter: 2022Q4

REPORT INFORMATION
  Report Type: Spontaneous
  Country: US (occurrence: US)
  Receive Date: 20221028
  Receipt Date: 20221028
  Transmission Date: 20230113
  Serious: Yes (Other)
  Sender: FDA-Public Use
  Company Number: BI-BoehringerIngelheim-2021-BI-124076

PATIENT
  Age: 73 Year
  Sex: Female

DRUGS (1)
  1. PRADAXA [Suspect]
     Active Substance: DABIGATRAN ETEXILATE MESYLATE
     Indication: Product used for unknown indication
     Dosage: 75 MG
     Route: 048
     Dates: start: 20201012, end: 20210827

REACTIONS (1)
  - Microembolism [Recovered/Resolved]

NARRATIVE: CASE EVENT DATE: 20210222
